FAERS Safety Report 24189721 (Version 8)
Quarter: 2025Q1

REPORT INFORMATION
  Report Type: Spontaneous
  Country: US (occurrence: US)
  Receive Date: 20240808
  Receipt Date: 20250307
  Transmission Date: 20250409
  Serious: No
  Sender: BIOGEN
  Company Number: US-BIOGEN-2024BI01276987

PATIENT
  Sex: Female

DRUGS (22)
  1. VUMERITY [Suspect]
     Active Substance: DIROXIMEL FUMARATE
     Indication: Multiple sclerosis
     Route: 050
     Dates: start: 20240729
  2. VUMERITY [Suspect]
     Active Substance: DIROXIMEL FUMARATE
     Route: 050
     Dates: start: 20240731
  3. VUMERITY [Suspect]
     Active Substance: DIROXIMEL FUMARATE
     Dosage: 231 MG IN THE MORNING AND IN THE EVENING. REDUCED DOSE
     Route: 050
     Dates: start: 202408
  4. VUMERITY [Suspect]
     Active Substance: DIROXIMEL FUMARATE
     Dosage: 2 CAPSULES (462 MG) BY MOUTH TWICE A DAY
     Route: 050
     Dates: start: 2024
  5. AMITRIPTYLINE [Suspect]
     Active Substance: AMITRIPTYLINE
     Indication: Product used for unknown indication
     Route: 050
  6. TRELEGY ELLIPTA [Suspect]
     Active Substance: FLUTICASONE FUROATE\UMECLIDINIUM BROMIDE\VILANTEROL TRIFENATATE
     Indication: Product used for unknown indication
     Route: 050
  7. ESCITALOPRAM [Suspect]
     Active Substance: ESCITALOPRAM OXALATE
     Indication: Product used for unknown indication
     Route: 050
  8. CLONAZEPAM [Suspect]
     Active Substance: CLONAZEPAM
     Indication: Product used for unknown indication
     Route: 050
  9. LIBRAX [Suspect]
     Active Substance: CHLORDIAZEPOXIDE HYDROCHLORIDE\CLIDINIUM BROMIDE
     Indication: Product used for unknown indication
     Route: 050
  10. PROLIA [Concomitant]
     Active Substance: DENOSUMAB
     Route: 050
  11. COPAXONE [Concomitant]
     Active Substance: GLATIRAMER ACETATE
     Route: 050
  12. RESTASIS [Concomitant]
     Active Substance: CYCLOSPORINE
     Route: 050
  13. TYLENOL ARTHRITIS PAIN [Concomitant]
     Active Substance: ACETAMINOPHEN
     Route: 050
  14. VITAMIN D3 [Concomitant]
     Active Substance: CHOLECALCIFEROL
     Route: 050
  15. MOMETASONE FUROATE [Concomitant]
     Active Substance: MOMETASONE FUROATE
     Route: 050
  16. BISOPROLOL FUMARATE [Concomitant]
     Active Substance: BISOPROLOL FUMARATE
     Route: 050
  17. BUDESONIDE [Concomitant]
     Active Substance: BUDESONIDE
     Route: 050
  18. CALCIUM\VITAMIN D [Concomitant]
     Active Substance: CALCIUM\VITAMIN D
     Route: 050
  19. CEQUA [Concomitant]
     Active Substance: CYCLOSPORINE
     Route: 050
  20. FEXOFENADINE [Concomitant]
     Active Substance: FEXOFENADINE HYDROCHLORIDE
     Route: 050
  21. KETOCONAZOLE [Concomitant]
     Active Substance: KETOCONAZOLE
     Route: 050
  22. Restora [Concomitant]
     Route: 050

REACTIONS (20)
  - Heart rate increased [Not Recovered/Not Resolved]
  - Gastrooesophageal reflux disease [Not Recovered/Not Resolved]
  - Hiatus hernia [Not Recovered/Not Resolved]
  - Weight decreased [Not Recovered/Not Resolved]
  - Ulcer [Not Recovered/Not Resolved]
  - Multiple sclerosis [Not Recovered/Not Resolved]
  - Anxiety [Unknown]
  - Tremor [Unknown]
  - Feeling jittery [Unknown]
  - Bronchial hyperreactivity [Unknown]
  - Hernia [Unknown]
  - Flatulence [Unknown]
  - Gastrointestinal disorder [Unknown]
  - Insomnia [Unknown]
  - Asthenia [Unknown]
  - Dizziness [Unknown]
  - Alopecia [Not Recovered/Not Resolved]
  - Flushing [Unknown]
  - Liver function test increased [Recovered/Resolved]
  - Pruritus [Recovered/Resolved]

NARRATIVE: CASE EVENT DATE: 20240101
